FAERS Safety Report 5048597-5 (Version None)
Quarter: 2006Q2

REPORT INFORMATION
  Report Type: 
  Country: None (occurrence: None)
  Receive Date: 20060622
  Receipt Date: 20060615
  Transmission Date: 20061013
  Serious: Yes (Other)
  Sender: FDA-Public Use
  Company Number: 2006BH010477

PATIENT
  Sex: 0

DRUGS (1)
  1. IMMUNE GLOBULIN (HUMAN) [Suspect]
     Indication: HUMAN HERPESVIRUS 6 INFECTION

REACTIONS (2)
  - ENCEPHALOPATHY [None]
  - OEDEMA [None]
